FAERS Safety Report 9510913 (Version 1)
Quarter: 2013Q3

REPORT INFORMATION
  Report Type: Spontaneous
  Country: US (occurrence: US)
  Receive Date: 20130910
  Receipt Date: 20130910
  Transmission Date: 20140515
  Serious: No
  Sender: FDA-Public Use
  Company Number: US-BIOGENIDEC-2013BI085091

PATIENT
  Age: 54 Year
  Sex: Female

DRUGS (1)
  1. TYSABRI [Suspect]
     Indication: MULTIPLE SCLEROSIS
     Route: 042
     Dates: start: 20081231

REACTIONS (14)
  - Diarrhoea [Recovered/Resolved]
  - Apathy [Recovered/Resolved]
  - Hypoaesthesia [Recovered/Resolved]
  - Tremor [Recovered/Resolved]
  - Memory impairment [Not Recovered/Not Resolved]
  - Coordination abnormal [Recovered/Resolved]
  - Vein disorder [Not Recovered/Not Resolved]
  - Medical device complication [Recovered/Resolved]
  - Blood potassium decreased [Unknown]
  - Blood magnesium decreased [Unknown]
  - Electrolyte imbalance [Unknown]
  - Blood potassium increased [Unknown]
  - Blood magnesium increased [Unknown]
  - Blood electrolytes increased [Unknown]
